FAERS Safety Report 5083643-4 (Version None)
Quarter: 2006Q3

REPORT INFORMATION
  Report Type: 
  Country: None (occurrence: None)
  Receive Date: 20060818
  Receipt Date: 20060411
  Transmission Date: 20061208
  Serious: Yes (Hospitalization, Other)
  Sender: FDA-Public Use
  Company Number: PHBS2006BE05377

PATIENT
  Age: 32 Year
  Sex: Female

DRUGS (6)
  1. LIORESAL [Suspect]
     Dosage: 2.5 MG/DAY
     Route: 048
     Dates: start: 20060317, end: 20060323
  2. LIORESAL [Suspect]
     Dosage: 10 MG/DAY
     Route: 048
     Dates: start: 20060324, end: 20060406
  3. LIORESAL [Suspect]
     Dosage: 7.5 MG/DAY
     Route: 048
     Dates: start: 20060407, end: 20060407
  4. LIORESAL [Suspect]
     Dosage: 2.5 MG/DAY
     Route: 048
     Dates: start: 20060408
  5. ZURCAL [Concomitant]
     Dates: start: 20050701
  6. REMERGON [Concomitant]

REACTIONS (16)
  - ASTHENIA [None]
  - BLOOD PRESSURE INCREASED [None]
  - CHEST DISCOMFORT [None]
  - DEPRESSED MOOD [None]
  - DEPRESSION [None]
  - DRUG WITHDRAWAL SYNDROME [None]
  - DYSPNOEA [None]
  - FEELING ABNORMAL [None]
  - FEELING COLD [None]
  - HEART RATE INCREASED [None]
  - INJURY [None]
  - MUSCLE SPASMS [None]
  - MYALGIA [None]
  - PANIC ATTACK [None]
  - PARAESTHESIA [None]
  - THIRST [None]
